FAERS Safety Report 6897878-9 (Version None)
Quarter: 2010Q3

REPORT INFORMATION
  Report Type: 
  Country: None (occurrence: None)
  Receive Date: 20100802
  Receipt Date: 20070725
  Transmission Date: 20110219
  Serious: No
  Sender: FDA-Public Use
  Company Number: US-PFIZER INC-2007060731

PATIENT
  Sex: Male

DRUGS (5)
  1. LYRICA [Suspect]
     Dates: start: 20060608
  2. ATENOLOL [Concomitant]
  3. ALBUTEROL [Concomitant]
  4. LOSARTAN POSTASSIUM [Concomitant]
  5. SOMA [Concomitant]

REACTIONS (1)
  - PAIN IN EXTREMITY [None]
